FAERS Safety Report 20161895 (Version 1)
Quarter: 2021Q4

REPORT INFORMATION
  Report Type: Spontaneous
  Country: US (occurrence: US)
  Receive Date: 20211208
  Receipt Date: 20211208
  Transmission Date: 20220304
  Serious: No
  Sender: FDA-Public Use
  Company Number: US-FRESENIUS KABI-FK202113533

PATIENT

DRUGS (3)
  1. VINBLASTINE [Suspect]
     Active Substance: VINBLASTINE
     Indication: Product used for unknown indication
     Route: 065
  2. DACARBAZINE [Suspect]
     Active Substance: DACARBAZINE
     Indication: Product used for unknown indication
     Route: 065
  3. BRENTUXIMAB VEDOTIN [Suspect]
     Active Substance: BRENTUXIMAB VEDOTIN
     Indication: Product used for unknown indication
     Route: 065

REACTIONS (1)
  - Swelling of eyelid [Recovered/Resolved]
